FAERS Safety Report 8524790-1 (Version None)
Quarter: 2012Q3

REPORT INFORMATION
  Report Type: 
  Country: None (occurrence: None)
  Receive Date: 20120720
  Receipt Date: 20120711
  Transmission Date: 20120928
  Serious: Yes (Other)
  Sender: FDA-Public Use
  Company Number: US-GLAXOSMITHKLINE-A0984270A

PATIENT
  Age: 78 Year
  Sex: Female

DRUGS (6)
  1. LEVOTHYROXINE SODIUM [Concomitant]
  2. MULTIVITAMIN [Concomitant]
  3. AVANDIA [Suspect]
     Indication: TYPE 2 DIABETES MELLITUS
     Route: 065
     Dates: start: 20100101, end: 20100701
  4. LIPITOR [Concomitant]
  5. VITAMINES [Concomitant]
  6. METFORMIN HYDROCHLORIDE [Concomitant]

REACTIONS (3)
  - PARAESTHESIA [None]
  - CARDIAC MURMUR [None]
  - CHRONIC LYMPHOCYTIC LEUKAEMIA [None]
